FAERS Safety Report 15156116 (Version 1)
Quarter: 2018Q3

REPORT INFORMATION
  Report Type: Spontaneous
  Country: US (occurrence: US)
  Receive Date: 20180717
  Receipt Date: 20180717
  Transmission Date: 20181010
  Serious: No
  Sender: FDA-Public Use
  Company Number: US-GE HEALTHCARE LIFE SCIENCES-2018CSU002734

PATIENT
  Sex: Female

DRUGS (2)
  1. LANSOPRAZOLE. [Concomitant]
     Active Substance: LANSOPRAZOLE
  2. OMNISCAN [Suspect]
     Active Substance: GADODIAMIDE
     Indication: HEADACHE
     Dosage: UNK UNK, SINGLE
     Route: 065
     Dates: start: 20180622, end: 20180622

REACTIONS (1)
  - Urticaria [Recovered/Resolved]

NARRATIVE: CASE EVENT DATE: 20180622
